FAERS Safety Report 7526107-8 (Version None)
Quarter: 2011Q2

REPORT INFORMATION
  Report Type: 
  Country: None (occurrence: None)
  Receive Date: 20110606
  Receipt Date: 20110526
  Transmission Date: 20111010
  Serious: Yes (Hospitalization, Other)
  Sender: FDA-Public Use
  Company Number: JP-MERCK-1104USA03917

PATIENT
  Age: 66 Year
  Sex: Female
  Weight: 65 kg

DRUGS (15)
  1. PEPCID RPD [Suspect]
     Indication: PROPHYLAXIS AGAINST GASTROINTESTINAL ULCER
     Route: 048
     Dates: start: 20110321, end: 20110414
  2. KETOPROFEN [Concomitant]
     Indication: ANALGESIC THERAPY
     Route: 065
     Dates: start: 20110225
  3. FERROUS CITRATE [Concomitant]
     Indication: ANAEMIA
     Route: 048
     Dates: start: 20110225
  4. SMALLPOX VACCINE [Concomitant]
     Indication: PROPHYLAXIS
     Route: 051
     Dates: start: 20110407, end: 20110416
  5. CLEXANE (ENOXAPARIN SODIUM) [Concomitant]
     Route: 051
     Dates: start: 20110317, end: 20110322
  6. CEFOTIAM HYDROCHLORIDE [Suspect]
     Indication: INFECTION PROPHYLAXIS
     Route: 041
     Dates: start: 20110316, end: 20110424
  7. VOLTAREN [Concomitant]
     Indication: ANALGESIC THERAPY
     Route: 054
     Dates: start: 20110321, end: 20110322
  8. PEPCID [Concomitant]
     Indication: PROPHYLAXIS AGAINST GASTROINTESTINAL ULCER
     Route: 051
     Dates: start: 20110316, end: 20110316
  9. SELBEX [Concomitant]
     Indication: PROPHYLAXIS AGAINST GASTROINTESTINAL ULCER
     Route: 048
     Dates: start: 20110314
  10. CELECOXIB [Suspect]
     Indication: ANALGESIC THERAPY
     Route: 048
     Dates: start: 20110321, end: 20110414
  11. ZOLPIDEM [Suspect]
     Indication: INSOMNIA
     Route: 048
     Dates: start: 20110315
  12. NORVASC [Concomitant]
     Indication: HYPERTENSION
     Route: 048
     Dates: start: 20110314
  13. LOXONIN [Concomitant]
     Indication: ANALGESIC THERAPY
     Route: 048
     Dates: start: 20110314
  14. METHYCOBAL [Concomitant]
     Indication: HYPOAESTHESIA
     Route: 048
     Dates: start: 20110406
  15. FLOMAX [Concomitant]
     Indication: INFECTION PROPHYLAXIS
     Route: 048
     Dates: start: 20110403, end: 20110427

REACTIONS (3)
  - HEPATIC FUNCTION ABNORMAL [None]
  - POST PROCEDURAL INFECTION [None]
  - PANCYTOPENIA [None]
